FAERS Safety Report 6122210-8 (Version None)
Quarter: 2009Q1

REPORT INFORMATION
  Report Type: 
  Country: None (occurrence: None)
  Receive Date: 20090318
  Receipt Date: 20090316
  Transmission Date: 20090719
  Serious: Yes (Other)
  Sender: FDA-Public Use
  Company Number: US-ASTRAZENECA-2007UW09482

PATIENT
  Age: 556 Month
  Sex: Female
  Weight: 70.8 kg

DRUGS (6)
  1. SEROQUEL [Suspect]
     Indication: BIPOLAR I DISORDER
     Dosage: 200 TO 300 MG
     Route: 048
     Dates: start: 20030114
  2. GEODON [Concomitant]
     Dates: start: 20040818, end: 20041020
  3. GEODON [Concomitant]
     Dates: start: 20050816
  4. GEODON [Concomitant]
     Dates: start: 20050912, end: 20051011
  5. RISPERDAL [Concomitant]
     Dates: start: 20000401
  6. ZYPREXA [Concomitant]
     Dates: start: 20000501

REACTIONS (6)
  - BLOOD CHOLESTEROL INCREASED [None]
  - BLOOD TRIGLYCERIDES INCREASED [None]
  - LIVER INJURY [None]
  - MYOCARDIAL INFARCTION [None]
  - RENAL DISORDER [None]
  - TYPE 2 DIABETES MELLITUS [None]
